FAERS Safety Report 4930714-6 (Version None)
Quarter: 2006Q1

REPORT INFORMATION
  Report Type: 
  Country: None (occurrence: None)
  Receive Date: 20060227
  Receipt Date: 20060215
  Transmission Date: 20060701
  Serious: Yes (Other)
  Sender: FDA-Public Use
  Company Number: 2006023129

PATIENT
  Sex: Female
  Weight: 86.1834 kg

DRUGS (7)
  1. LIPITOR [Suspect]
     Indication: BLOOD CHOLESTEROL INCREASED
     Dosage: (10 MG 1 IN 1 D), ORAL
     Route: 048
  2. DIURETICS (DIURETICS) [Concomitant]
  3. ANTIHYPERTENSIVES (ANTIHYPERTENSIVES) [Concomitant]
  4. POTASSIUM (POTASSIUM) [Concomitant]
  5. CENTRUM A TO ZINC (MINERALS NOS, VITAMINS NOS) [Concomitant]
  6. ECOTRIN (ACETYLSALICYLIC ACID) [Concomitant]
  7. ALEVE [Concomitant]

REACTIONS (10)
  - ARTHRITIS [None]
  - ARTHROSCOPIC SURGERY [None]
  - BACK INJURY [None]
  - BLADDER DISORDER [None]
  - BLOOD CALCIUM INCREASED [None]
  - DRUG EFFECT DECREASED [None]
  - EXOSTOSIS [None]
  - FALL [None]
  - LIMB INJURY [None]
  - LOW DENSITY LIPOPROTEIN INCREASED [None]
